FAERS Safety Report 9828083 (Version 2)
Quarter: 2014Q1

REPORT INFORMATION
  Report Type: Spontaneous
  Country: US (occurrence: US)
  Receive Date: 20140117
  Receipt Date: 20140117
  Transmission Date: 20141002
  Serious: Yes (Disabling)
  Sender: FDA-Public Use
  Company Number: US-BMSGILMSD-2010-0031918

PATIENT
  Age: 40 Year
  Sex: Male
  Weight: 73.03 kg

DRUGS (3)
  1. ATRIPLA [Suspect]
     Indication: HIV INFECTION
     Route: 048
  2. TRUVADA [Concomitant]
     Indication: HIV INFECTION
     Route: 048
  3. ISENTRESS [Concomitant]
     Indication: HIV INFECTION
     Route: 048

REACTIONS (1)
  - Rash [Recovered/Resolved]
